FAERS Safety Report 4907269-5 (Version None)
Quarter: 2006Q1

REPORT INFORMATION
  Report Type: 
  Country: None (occurrence: None)
  Receive Date: 20060207
  Receipt Date: 20060201
  Transmission Date: 20060701
  Serious: Yes (Death)
  Sender: FDA-Public Use
  Company Number: USA-2006--0023477

PATIENT
  Age: 68 Year
  Sex: Female

DRUGS (1)
  1. OXYCONTIN [Suspect]

REACTIONS (1)
  - DEATH [None]
